FAERS Safety Report 8034409-4 (Version None)
Quarter: 2012Q1

REPORT INFORMATION
  Report Type: 
  Country: None (occurrence: None)
  Receive Date: 20120110
  Receipt Date: 20111229
  Transmission Date: 20120608
  Serious: Yes (Hospitalization)
  Sender: FDA-Public Use
  Company Number: IE-MEDIMMUNE-MEDI-0014230

PATIENT
  Sex: Female
  Weight: 7.72 kg

DRUGS (4)
  1. SYNAGIS [Suspect]
     Route: 030
     Dates: start: 20111223, end: 20111223
  2. LEVETIRACETAM [Concomitant]
  3. TOPIRAMATE [Concomitant]
  4. SYNAGIS [Suspect]
     Indication: HEART DISEASE CONGENITAL
     Route: 030
     Dates: start: 20110118, end: 20110118

REACTIONS (4)
  - RESPIRATORY TRACT INFECTION [None]
  - MALAISE [None]
  - GENERAL PHYSICAL HEALTH DETERIORATION [None]
  - PYREXIA [None]
